FAERS Safety Report 13298092 (Version 1)
Quarter: 2017Q1

REPORT INFORMATION
  Report Type: Spontaneous
  Country: None (occurrence: US)
  Receive Date: 20170304
  Receipt Date: 20170304
  Transmission Date: 20170428
  Serious: Yes (Hospitalization)
  Sender: FDA-Public Use
  Company Number: None

PATIENT
  Age: 77 Year
  Sex: Male
  Weight: 82.1 kg

DRUGS (1)
  1. MEMANTINE HYDROCHLORIDE. [Suspect]
     Active Substance: MEMANTINE HYDROCHLORIDE
     Dates: end: 20161114

REACTIONS (6)
  - Dehydration [None]
  - Muscular weakness [None]
  - Pneumonitis [None]
  - Hemiparesis [None]
  - Pulmonary oedema [None]
  - Infection [None]

NARRATIVE: CASE EVENT DATE: 20161115
